FAERS Safety Report 8953534 (Version 1)
Quarter: 2012Q4

REPORT INFORMATION
  Report Type: 
  Country: GB (occurrence: GB)
  Receive Date: 20121206
  Receipt Date: 20121206
  Transmission Date: 20130627
  Serious: Yes (Hospitalization)
  Sender: FDA-Public Use
  Company Number: GB-BANPHARM-20120393

PATIENT
  Age: 90 Year
  Sex: Male

DRUGS (3)
  1. IBUPROFEN UNKNOWN PRODUCT [Suspect]
     Indication: OSTEOARTHRITIS
     Dosage: 400mg, -,
     Route: 048
     Dates: end: 20050404
  2. DOCUSATE [Concomitant]
     Dosage: 3, 1 Day
     Route: 048
  3. PARACETAMOL [Concomitant]
     Dosage: 1
     Route: 048

REACTIONS (1)
  - Gastrointestinal haemorrhage [Recovering/Resolving]
